FAERS Safety Report 13527958 (Version 1)
Quarter: 2017Q2

REPORT INFORMATION
  Report Type: Spontaneous
  Country: ES (occurrence: ES)
  Receive Date: 20170509
  Receipt Date: 20170509
  Transmission Date: 20170830
  Serious: Yes (Life-Threatening, Hospitalization, Other)
  Sender: FDA-Public Use
  Company Number: ES-MYLANLABS-2017M1027511

PATIENT

DRUGS (5)
  1. LEVODOPA [Suspect]
     Active Substance: LEVODOPA
     Indication: PARKINSON^S DISEASE
     Dosage: 1450 MG/DAY
     Route: 050
  2. ROPINIROLE. [Suspect]
     Active Substance: ROPINIROLE
     Indication: RESTLESS LEGS SYNDROME
     Dosage: 8 MG/DAY, EXTENDED RELEASE
     Route: 048
  3. AMANTADINE. [Suspect]
     Active Substance: AMANTADINE HYDROCHLORIDE
     Indication: PARKINSON^S DISEASE
     Dosage: 200 MG/DAY; STABLE DOSES
     Route: 048
  4. SAFINAMIDE [Suspect]
     Active Substance: SAFINAMIDE
     Indication: PARKINSON^S DISEASE
     Dosage: 100 MG/DAY; STABLE DOSES
     Route: 048
  5. CARBIDOPA. [Suspect]
     Active Substance: CARBIDOPA
     Indication: PARKINSON^S DISEASE
     Dosage: 362.5 MG/DAY; STABLE DOSES
     Route: 050

REACTIONS (2)
  - Parkinsonism hyperpyrexia syndrome [Recovered/Resolved]
  - Injury [Unknown]
